FAERS Safety Report 17111292 (Version 2)
Quarter: 2019Q4

REPORT INFORMATION
  Report Type: Spontaneous
  Country: US (occurrence: US)
  Receive Date: 20191204
  Receipt Date: 20191210
  Transmission Date: 20200122
  Serious: Yes (Other)
  Sender: FDA-Public Use
  Company Number: US-PFIZER INC-12933

PATIENT
  Age: 36 Year
  Sex: Male

DRUGS (1)
  1. METHOTREXATE SODIUM. [Suspect]
     Active Substance: METHOTREXATE SODIUM
     Indication: ERYTHRODERMIC PSORIASIS
     Dosage: 15 MG, WEEKLY
     Route: 048

REACTIONS (5)
  - Product use issue [Unknown]
  - Off label use [Unknown]
  - Ventricular extrasystoles [Recovered/Resolved]
  - Myocardial infarction [Recovered/Resolved]
  - Ventricular fibrillation [Recovered/Resolved]
